FAERS Safety Report 18587084 (Version 1)
Quarter: 2020Q4

REPORT INFORMATION
  Report Type: Spontaneous
  Country: US (occurrence: US)
  Receive Date: 20201022
  Receipt Date: 20201022
  Transmission Date: 20210114
  Serious: No
  Sender: FDA-Public Use
  Company Number: None

PATIENT
  Age: 8 Decade
  Sex: 0

DRUGS (8)
  1. LINEZOLID. [Suspect]
     Active Substance: LINEZOLID
     Indication: COVID-19
     Dates: start: 2020
  2. LOPINAVIR-RITONAVIR [Suspect]
     Active Substance: LOPINAVIR\RITONAVIR
     Indication: COVID-19
     Dosage: ?          OTHER DOSE:400/100MG;?
     Dates: start: 2020
  3. DOXYCYCLINE. [Suspect]
     Active Substance: DOXYCYCLINE
     Indication: COVID-19
     Dates: start: 2020
  4. LEVOFLOXACIN. [Suspect]
     Active Substance: LEVOFLOXACIN
     Indication: COVID-19
     Dates: start: 2020
  5. CHLOROQUINE. [Suspect]
     Active Substance: CHLOROQUINE
     Indication: COVID-19
     Dates: start: 2020
  6. REMDESEVIR 100MG [Suspect]
     Active Substance: REMDESIVIR
     Indication: COVID-19
     Dates: start: 2020
  7. REMDESEVIR 100MG [Suspect]
     Active Substance: REMDESIVIR
     Dates: start: 2020
  8. MEROPENEM. [Suspect]
     Active Substance: MEROPENEM
     Indication: COVID-19
     Dates: start: 2020

REACTIONS (3)
  - Off label use [None]
  - Device related infection [None]
  - Candida infection [None]
